FAERS Safety Report 16780110 (Version 1)
Quarter: 2019Q3

REPORT INFORMATION
  Report Type: Spontaneous
  Country: CA (occurrence: CA)
  Receive Date: 20190906
  Receipt Date: 20190906
  Transmission Date: 20191005
  Serious: Yes (Other)
  Sender: FDA-Public Use
  Company Number: CA-009507513-1909CAN001459

PATIENT
  Age: 28 Year
  Sex: Female
  Weight: 127 kg

DRUGS (1)
  1. MARVELON [Suspect]
     Active Substance: DESOGESTREL\ETHINYL ESTRADIOL
     Route: 065

REACTIONS (8)
  - Depressive symptom [Recovered/Resolved]
  - Poor quality sleep [Recovered/Resolved]
  - Libido decreased [Recovered/Resolved]
  - Decreased appetite [Recovered/Resolved]
  - Panic attack [Recovered/Resolved]
  - Asthenia [Recovered/Resolved]
  - Anxiety [Recovered/Resolved]
  - Crying [Recovered/Resolved]
